FAERS Safety Report 23377574 (Version 1)
Quarter: 2024Q1

REPORT INFORMATION
  Report Type: Spontaneous
  Country: CN (occurrence: CN)
  Receive Date: 20240108
  Receipt Date: 20240108
  Transmission Date: 20240410
  Serious: Yes (Hospitalization, Other)
  Sender: FDA-Public Use
  Company Number: CN-PFIZER INC-PV202300208603

PATIENT
  Age: 5 Week
  Sex: Male
  Weight: 2.85 kg

DRUGS (2)
  1. ZITHROMAX [Suspect]
     Active Substance: AZITHROMYCIN DIHYDRATE
     Indication: Pneumonia bordetella
     Dosage: 0.028 G, 1X/DAY
     Route: 048
     Dates: start: 20231212, end: 20231212
  2. ZITHROMAX [Suspect]
     Active Substance: AZITHROMYCIN DIHYDRATE
     Dosage: 0.014 G, 1X/DAY
     Route: 048
     Dates: start: 20231213, end: 20231214

REACTIONS (2)
  - Rash [Recovering/Resolving]
  - Flushing [Recovering/Resolving]

NARRATIVE: CASE EVENT DATE: 20231214
